FAERS Safety Report 11518118 (Version 2)
Quarter: 2015Q4

REPORT INFORMATION
  Report Type: Report from Study
  Country: US (occurrence: US)
  Receive Date: 20150917
  Receipt Date: 20151002
  Transmission Date: 20160304
  Serious: Yes (Other)
  Sender: FDA-Public Use
  Company Number: US-BAXALTA-2015BLT001715

PATIENT
  Age: 62 Year
  Sex: Female
  Weight: 82 kg

DRUGS (3)
  1. HYQVIA [Suspect]
     Active Substance: HUMAN IMMUNOGLOBULIN G\HYALURONIDASE RECOMBINANT HUMAN
     Dosage: 25 G, EVERY 2 WK
     Route: 058
     Dates: start: 20150813
  2. HYQVIA [Suspect]
     Active Substance: HUMAN IMMUNOGLOBULIN G\HYALURONIDASE RECOMBINANT HUMAN
     Dosage: 50 G, 1X A MONTH
     Route: 058
     Dates: start: 201506
  3. HYQVIA [Suspect]
     Active Substance: HUMAN IMMUNOGLOBULIN G\HYALURONIDASE RECOMBINANT HUMAN
     Indication: IMMUNODEFICIENCY COMMON VARIABLE
     Dosage: 50 G, 1X A MONTH
     Route: 058
     Dates: start: 201503

REACTIONS (11)
  - Asthenia [Unknown]
  - Asthma [Unknown]
  - Swelling [Unknown]
  - Skin exfoliation [Unknown]
  - Pain [Unknown]
  - Feeling abnormal [Unknown]
  - Discomfort [Unknown]
  - Underdose [Unknown]
  - Skin warm [Unknown]
  - Malaise [Unknown]
  - Burning sensation [Unknown]

NARRATIVE: CASE EVENT DATE: 20150615
